FAERS Safety Report 9766471 (Version 2)
Quarter: 2014Q2

REPORT INFORMATION
  Report Type: Spontaneous
  Country: US (occurrence: US)
  Receive Date: 20131217
  Receipt Date: 20140616
  Transmission Date: 20141212
  Serious: No
  Sender: FDA-Public Use
  Company Number: US-BIOGENIDEC-2013BI117980

PATIENT
  Age: 50 Year
  Sex: Female

DRUGS (2)
  1. TECFIDERA [Suspect]
     Indication: RELAPSING-REMITTING MULTIPLE SCLEROSIS
     Route: 048
     Dates: start: 20130804, end: 20131203
  2. TYSABRI [Concomitant]
     Indication: MULTIPLE SCLEROSIS
     Route: 042

REACTIONS (6)
  - Hyperhidrosis [Not Recovered/Not Resolved]
  - Neoplasm skin [Not Recovered/Not Resolved]
  - Skin lesion [Not Recovered/Not Resolved]
  - Breast cellulitis [Not Recovered/Not Resolved]
  - Mastitis [Recovered/Resolved]
  - Rash [Not Recovered/Not Resolved]
